FAERS Safety Report 6965312-6 (Version None)
Quarter: 2010Q3

REPORT INFORMATION
  Report Type: 
  Country: None (occurrence: None)
  Receive Date: 20100903
  Receipt Date: 20100823
  Transmission Date: 20110219
  Serious: Yes (Other)
  Sender: FDA-Public Use
  Company Number: US-SANOFI-AVENTIS-2010SA050094

PATIENT
  Age: 83 Year
  Sex: Female

DRUGS (11)
  1. PLAVIX [Suspect]
     Route: 048
     Dates: start: 20040101
  2. BENICAR [Concomitant]
  3. ATENOLOL [Concomitant]
  4. VYTORIN [Concomitant]
     Dosage: 10/40MG DAILY
  5. FISH OIL [Concomitant]
  6. CHONDROITIN SULFATE/GLUCOSAMINE [Concomitant]
  7. CALCIUM [Concomitant]
  8. VITAMIN D [Concomitant]
  9. MAGNESIUM [Concomitant]
  10. COENZYME Q10 [Concomitant]
  11. LOVAZA [Concomitant]

REACTIONS (4)
  - CONCUSSION [None]
  - CONTUSION [None]
  - FALL [None]
  - HEADACHE [None]
